FAERS Safety Report 23056736 (Version 1)
Quarter: 2023Q4

REPORT INFORMATION
  Report Type: Spontaneous
  Country: US (occurrence: US)
  Receive Date: 20231012
  Receipt Date: 20231012
  Transmission Date: 20240109
  Serious: Yes (Other)
  Sender: FDA-Public Use
  Company Number: US-ABBVIE-5445404

PATIENT
  Sex: Male

DRUGS (8)
  1. LUPRON [Suspect]
     Active Substance: LEUPROLIDE ACETATE
     Indication: Product used for unknown indication
     Route: 065
  2. XTANDI [Suspect]
     Active Substance: ENZALUTAMIDE
     Indication: Prostate cancer
     Dosage: LAST ADMINISTRATION DATE: AUG 2020
     Route: 048
     Dates: start: 20200805
  3. XTANDI [Suspect]
     Active Substance: ENZALUTAMIDE
     Indication: Prostate cancer
     Route: 048
     Dates: start: 20210312
  4. XTANDI [Suspect]
     Active Substance: ENZALUTAMIDE
     Indication: Prostate cancer
     Dosage: LAST ADMINISTRATION DATE: AUG 2020
     Route: 048
     Dates: start: 202008
  5. XTANDI [Suspect]
     Active Substance: ENZALUTAMIDE
     Indication: Prostate cancer
     Dosage: LAST ADMINISTRATION DATE: 2020
     Route: 048
     Dates: start: 20200806
  6. XTANDI [Suspect]
     Active Substance: ENZALUTAMIDE
     Indication: Prostate cancer
     Dosage: LAST ADMINISTRATION DATE: OCT 2020
     Route: 048
     Dates: start: 20201001
  7. XTANDI [Suspect]
     Active Substance: ENZALUTAMIDE
     Indication: Prostate cancer
     Dosage: LAST ADMINISTRATION DATE: 2020
     Route: 048
     Dates: start: 202010
  8. XTANDI [Suspect]
     Active Substance: ENZALUTAMIDE
     Indication: Prostate cancer
     Route: 048
     Dates: start: 202012

REACTIONS (11)
  - Intervertebral disc degeneration [Unknown]
  - Multiple allergies [Unknown]
  - Bone pain [Not Recovered/Not Resolved]
  - Myalgia [Unknown]
  - Muscle atrophy [Unknown]
  - Diarrhoea [Unknown]
  - Fatigue [Recovering/Resolving]
  - Sneezing [Unknown]
  - Hypoaesthesia [Not Recovered/Not Resolved]
  - Rhinorrhoea [Unknown]
  - Muscular weakness [Unknown]
